FAERS Safety Report 8510536-X (Version None)
Quarter: 2012Q3

REPORT INFORMATION
  Report Type: 
  Country: None (occurrence: None)
  Receive Date: 20120716
  Receipt Date: 20120704
  Transmission Date: 20120928
  Serious: Yes (Hospitalization)
  Sender: FDA-Public Use
  Company Number: FR-BRISTOL-MYERS SQUIBB COMPANY-16748675

PATIENT
  Age: 84 Year
  Sex: Female

DRUGS (12)
  1. ATHYMIL [Concomitant]
     Dosage: 1DF: 10 UNITS NOS
  2. COUMADIN [Suspect]
     Route: 048
  3. CALCIUM D3 SANDOZ [Concomitant]
  4. METFORMIN HCL [Concomitant]
  5. COZAAR [Concomitant]
     Dosage: 1DF: 50 UNITS NOS
  6. GLYBURIDE [Concomitant]
  7. CELECTOL [Concomitant]
  8. TOCO [Concomitant]
     Dosage: 1DF: 500 UNITS NOS
  9. IMOVANE [Concomitant]
  10. ADALAT [Concomitant]
     Dosage: 1DF: 20 UNITS NOS
  11. ACETAMINOPHEN [Concomitant]
  12. CORDARONE [Concomitant]
     Dosage: 1DF: 200 UNITS NOS

REACTIONS (2)
  - HAEMARTHROSIS [None]
  - WOUND INFECTION [None]
